FAERS Safety Report 7958459-9 (Version None)
Quarter: 2011Q4

REPORT INFORMATION
  Report Type: 
  Country: None (occurrence: None)
  Receive Date: 20111205
  Receipt Date: 20111124
  Transmission Date: 20120403
  Serious: Yes (Hospitalization)
  Sender: FDA-Public Use
  Company Number: JP-ELI_LILLY_AND_COMPANY-JP201108000925

PATIENT
  Age: 75 Year
  Sex: Female

DRUGS (2)
  1. FORTEO [Suspect]
     Dosage: UNK
     Route: 058
     Dates: start: 20111116
  2. FORTEO [Suspect]
     Dosage: UNK
     Route: 058
     Dates: end: 20110101

REACTIONS (6)
  - TRANSIENT ISCHAEMIC ATTACK [None]
  - HYPOAESTHESIA [None]
  - GRIP STRENGTH DECREASED [None]
  - HEADACHE [None]
  - ASTHENIA [None]
  - DIZZINESS [None]
